FAERS Safety Report 12908419 (Version 2)
Quarter: 2016Q4

REPORT INFORMATION
  Report Type: Spontaneous
  Country: US (occurrence: US)
  Receive Date: 20161103
  Receipt Date: 20161212
  Transmission Date: 20170207
  Serious: Yes (Other)
  Sender: FDA-Public Use
  Company Number: US-ELI_LILLY_AND_COMPANY-US201607007898

PATIENT
  Sex: Male

DRUGS (4)
  1. CYMBALTA [Suspect]
     Active Substance: DULOXETINE HYDROCHLORIDE
     Dosage: 60 MG, BID
     Route: 065
     Dates: start: 20140328
  2. CYMBALTA [Suspect]
     Active Substance: DULOXETINE HYDROCHLORIDE
     Indication: PRODUCT USED FOR UNKNOWN INDICATION
     Dosage: UNK, UNKNOWN
     Route: 065
  3. CYMBALTA [Suspect]
     Active Substance: DULOXETINE HYDROCHLORIDE
     Dosage: UNK, UNKNOWN
     Route: 065
     Dates: start: 2013
  4. CYMBALTA [Suspect]
     Active Substance: DULOXETINE HYDROCHLORIDE
     Dosage: 60 MG, UNK
     Route: 065

REACTIONS (26)
  - Nightmare [Unknown]
  - Mood swings [Unknown]
  - Suicidal ideation [Unknown]
  - Musculoskeletal pain [Unknown]
  - Agitation [Unknown]
  - Diarrhoea [Unknown]
  - Vision blurred [Unknown]
  - Confusional state [Unknown]
  - Lethargy [Unknown]
  - Nausea [Unknown]
  - Insomnia [Unknown]
  - Mobility decreased [Unknown]
  - Amnesia [Unknown]
  - Paraesthesia [Unknown]
  - Dysphoria [Unknown]
  - Affect lability [Unknown]
  - Sensory disturbance [Unknown]
  - Depressed mood [Unknown]
  - Aggression [Unknown]
  - Seizure [Unknown]
  - Pain in extremity [Unknown]
  - Drug withdrawal syndrome [Unknown]
  - Anxiety [Unknown]
  - Fatigue [Unknown]
  - Irritability [Unknown]
  - Headache [Unknown]
